FAERS Safety Report 17048415 (Version 1)
Quarter: 2019Q4

REPORT INFORMATION
  Report Type: Spontaneous
  Country: US (occurrence: US)
  Receive Date: 20191118
  Receipt Date: 20191118
  Transmission Date: 20200122
  Serious: Yes (Hospitalization)
  Sender: FDA-Public Use
  Company Number: None

PATIENT
  Age: 7 Year
  Sex: Male

DRUGS (2)
  1. METHADONE [Suspect]
     Active Substance: METHADONE HYDROCHLORIDE
     Indication: TOXICITY TO VARIOUS AGENTS
     Route: 048
  2. METHADONE [Suspect]
     Active Substance: METHADONE HYDROCHLORIDE
     Indication: TOXICITY TO VARIOUS AGENTS
     Route: 048

REACTIONS (5)
  - Somnolence [None]
  - Product dispensing error [None]
  - Bradycardia [None]
  - Bradypnoea [None]
  - Wrong product administered [None]

NARRATIVE: CASE EVENT DATE: 20190729
